FAERS Safety Report 21505661 (Version 2)
Quarter: 2022Q4

REPORT INFORMATION
  Report Type: Report from Study
  Country: US (occurrence: US)
  Receive Date: 20221026
  Receipt Date: 20221028
  Transmission Date: 20230113
  Serious: Yes (Hospitalization)
  Sender: FDA-Public Use
  Company Number: US-JNJFOC-20221036959

PATIENT
  Age: 11 Year
  Sex: Male
  Weight: 54.2 kg

DRUGS (4)
  1. INFLIXIMAB [Suspect]
     Active Substance: INFLIXIMAB
     Indication: Inflammatory bowel disease
     Route: 041
     Dates: start: 20120105, end: 20120718
  2. HUMIRA [Concomitant]
     Active Substance: ADALIMUMAB
     Dates: start: 20161213
  3. HUMIRA [Concomitant]
     Active Substance: ADALIMUMAB
     Dates: start: 201904
  4. MESALAMINE [Concomitant]
     Active Substance: MESALAMINE

REACTIONS (1)
  - Pneumothorax [Recovered/Resolved]

NARRATIVE: CASE EVENT DATE: 20190522
